FAERS Safety Report 14992526 (Version 2)
Quarter: 2018Q2

REPORT INFORMATION
  Report Type: Spontaneous
  Country: US (occurrence: US)
  Receive Date: 20180609
  Receipt Date: 20180621
  Transmission Date: 20180711
  Serious: Yes (Hospitalization, Other)
  Sender: FDA-Public Use
  Company Number: US-TEVA-2018-US-902711

PATIENT
  Sex: Female

DRUGS (1)
  1. FENTANYL. [Suspect]
     Active Substance: FENTANYL
     Route: 065

REACTIONS (8)
  - Apparent death [Unknown]
  - Product label issue [Unknown]
  - Loss of consciousness [Unknown]
  - Implantable defibrillator insertion [Unknown]
  - Memory impairment [Unknown]
  - Feeling hot [Unknown]
  - Drug intolerance [Unknown]
  - Respiratory arrest [Unknown]
